FAERS Safety Report 15889635 (Version 3)
Quarter: 2019Q2

REPORT INFORMATION
  Report Type: Spontaneous
  Country: US (occurrence: US)
  Receive Date: 20190130
  Receipt Date: 20190417
  Transmission Date: 20190711
  Serious: Yes (Other)
  Sender: FDA-Public Use
  Company Number: US-ASTRAZENECA-2018SF15063

PATIENT
  Age: 20313 Day
  Sex: Male
  Weight: 93 kg

DRUGS (17)
  1. ETHEZYME [Concomitant]
     Dates: start: 20050914
  2. ZITHROMAX [Concomitant]
     Active Substance: AZITHROMYCIN DIHYDRATE
     Dates: start: 20050809
  3. LEVEMIR [Concomitant]
     Active Substance: INSULIN DETEMIR
  4. LIPITOR [Concomitant]
     Active Substance: ATORVASTATIN CALCIUM
  5. NEXIUM [Suspect]
     Active Substance: ESOMEPRAZOLE MAGNESIUM
     Indication: GASTROOESOPHAGEAL REFLUX DISEASE
     Route: 048
     Dates: start: 200404, end: 201412
  6. GLYCOLAX [Concomitant]
     Active Substance: POLYETHYLENE GLYCOL 3350
     Dates: start: 20060228
  7. ZELNORM [Concomitant]
     Active Substance: TEGASEROD MALEATE
     Dates: start: 20051013
  8. TOBREX [Concomitant]
     Active Substance: TOBRAMYCIN
     Dates: start: 20050218
  9. REGLAN [Concomitant]
     Active Substance: METOCLOPRAMIDE HYDROCHLORIDE
  10. CLINDAMYCIN. [Concomitant]
     Active Substance: CLINDAMYCIN
     Dates: start: 20040319
  11. ZYVOX [Concomitant]
     Active Substance: LINEZOLID
     Dates: start: 20050914
  12. NORVASC [Concomitant]
     Active Substance: AMLODIPINE BESYLATE
     Dates: start: 20090423
  13. ALTACE [Concomitant]
     Active Substance: RAMIPRIL
     Dates: start: 20040419
  14. NOVOLOG [Concomitant]
     Active Substance: INSULIN ASPART
  15. NEXIUM [Suspect]
     Active Substance: ESOMEPRAZOLE MAGNESIUM
     Indication: GASTROOESOPHAGEAL REFLUX DISEASE
     Dosage: 40 MG
     Route: 048
     Dates: start: 20040419
  16. TEQUIN [Concomitant]
     Active Substance: GATIFLOXACIN
     Dates: start: 20040419
  17. AMITIZA [Concomitant]
     Active Substance: LUBIPROSTONE

REACTIONS (4)
  - Renal injury [Unknown]
  - Renal failure [Unknown]
  - End stage renal disease [Unknown]
  - Chronic kidney disease [Not Recovered/Not Resolved]

NARRATIVE: CASE EVENT DATE: 20090119
